FAERS Safety Report 6700633-3 (Version None)
Quarter: 2010Q2

REPORT INFORMATION
  Report Type: 
  Country: None (occurrence: None)
  Receive Date: 20100428
  Receipt Date: 20100416
  Transmission Date: 20101027
  Serious: Yes (Hospitalization)
  Sender: FDA-Public Use
  Company Number: PHHY2009JP41416

PATIENT
  Age: 78 Year
  Sex: Male

DRUGS (3)
  1. GLEEVEC [Suspect]
     Indication: GASTROINTESTINAL STROMAL TUMOUR
     Dosage: 400 MG, QD
     Route: 048
     Dates: start: 20080101, end: 20080201
  2. GLEEVEC [Suspect]
     Dosage: 100 MG/DAY
     Route: 048
     Dates: start: 20080301
  3. GLEEVEC [Suspect]
     Dosage: 300 MG/DAY
     Route: 048

REACTIONS (8)
  - ANTINUCLEAR ANTIBODY INCREASED [None]
  - C-REACTIVE PROTEIN INCREASED [None]
  - DYSPNOEA EXERTIONAL [None]
  - HYPOXIA [None]
  - INTERSTITIAL LUNG DISEASE [None]
  - LYMPHOCYTE COUNT INCREASED [None]
  - PLEURAL EFFUSION [None]
  - SURFACTANT PROTEIN INCREASED [None]
